FAERS Safety Report 7890195-X (Version None)
Quarter: 2011Q4

REPORT INFORMATION
  Report Type: 
  Country: None (occurrence: None)
  Receive Date: 20111103
  Receipt Date: 20110720
  Transmission Date: 20120403
  Serious: No
  Sender: FDA-Public Use
  Company Number: US-AMGEN-USASP2011006658

PATIENT
  Sex: Male

DRUGS (3)
  1. ENBREL [Suspect]
     Indication: PSORIATIC ARTHROPATHY
     Dosage: 50 MG, QWK
     Dates: start: 20090417, end: 20110301
  2. ENBREL [Suspect]
     Indication: PSORIASIS
  3. ENBREL [Suspect]

REACTIONS (13)
  - FEELING HOT [None]
  - PSORIATIC ARTHROPATHY [None]
  - PAIN [None]
  - THERAPEUTIC RESPONSE DECREASED [None]
  - ERYTHEMA [None]
  - LYMPHADENOPATHY [None]
  - PSORIASIS [None]
  - CHILLS [None]
  - NASOPHARYNGITIS [None]
  - CELLULITIS [None]
  - INFLUENZA LIKE ILLNESS [None]
  - OROPHARYNGEAL PAIN [None]
  - OEDEMA PERIPHERAL [None]
